APPROVED DRUG PRODUCT: TORSEMIDE
Active Ingredient: TORSEMIDE
Strength: 20MG
Dosage Form/Route: TABLET;ORAL
Application: A090613 | Product #003 | TE Code: AB
Applicant: STRIDES PHARMA INTERNATIONAL AG
Approved: Mar 22, 2011 | RLD: No | RS: No | Type: RX